FAERS Safety Report 6661156-3 (Version None)
Quarter: 2010Q1

REPORT INFORMATION
  Report Type: 
  Country: None (occurrence: None)
  Receive Date: 20100331
  Receipt Date: 20100324
  Transmission Date: 20100710
  Serious: Yes (Other)
  Sender: FDA-Public Use
  Company Number: A0852462A

PATIENT
  Sex: Female

DRUGS (1)
  1. PAXIL [Suspect]
     Indication: DRUG USE FOR UNKNOWN INDICATION
     Route: 065
     Dates: start: 19980101

REACTIONS (3)
  - DRUG EXPOSURE DURING PREGNANCY [None]
  - THERAPEUTIC RESPONSE UNEXPECTED [None]
  - UNINTENDED PREGNANCY [None]
